FAERS Safety Report 17439126 (Version 1)
Quarter: 2020Q1

REPORT INFORMATION
  Report Type: Spontaneous
  Country: US (occurrence: US)
  Receive Date: 20200220
  Receipt Date: 20200220
  Transmission Date: 20200409
  Serious: No
  Sender: FDA-Public Use
  Company Number: US-ASTRAZENECA-2020SE24163

PATIENT
  Sex: Male
  Weight: 8.2 kg

DRUGS (5)
  1. HYRDOCORTISONE [Concomitant]
     Active Substance: HYDROCORTISONE
  2. SYNAGIS [Suspect]
     Active Substance: PALIVIZUMAB
     Indication: ANTIVIRAL PROPHYLAXIS
     Route: 030
  3. ALBUTEROL SULFATE. [Concomitant]
     Active Substance: ALBUTEROL SULFATE
  4. AMLOPIDINE BESYLATE [Concomitant]
     Active Substance: AMLODIPINE BESYLATE
  5. EUCERIN [Concomitant]
     Active Substance: ENSULIZOLE\EUCERIN\OCTINOXATE\OCTISALATE\TITANIUM DIOXIDE\ZINC OXIDE

REACTIONS (2)
  - Eczema [Unknown]
  - Bite [Unknown]
